FAERS Safety Report 6460062-7 (Version None)
Quarter: 2009Q4

REPORT INFORMATION
  Report Type: 
  Country: None (occurrence: None)
  Receive Date: 20091129
  Receipt Date: 20091120
  Transmission Date: 20100525
  Serious: No
  Sender: FDA-Public Use
  Company Number: PHHY2009JP50243

PATIENT
  Age: 12 Year
  Sex: Male

DRUGS (1)
  1. ZADITEN [Suspect]
     Indication: RHINITIS ALLERGIC
     Dosage: 2 MG, DAILY
     Route: 048

REACTIONS (1)
  - NASOPHARYNGITIS [None]
